FAERS Safety Report 4491321-5 (Version None)
Quarter: 2004Q4

REPORT INFORMATION
  Report Type: 
  Country: None (occurrence: None)
  Receive Date: 20041101
  Receipt Date: 20041101
  Transmission Date: 20050328
  Serious: No
  Sender: FDA-Public Use
  Company Number: None

PATIENT
  Age: 69 Year
  Sex: Female
  Weight: 54.43 kg

DRUGS (1)
  1. AUGMENTIN '125' [Suspect]
     Indication: PNEUMONIA
     Dosage: 875MG   OTHER
     Route: 050
     Dates: start: 20040928, end: 20041006

REACTIONS (1)
  - THROMBOCYTHAEMIA [None]
